FAERS Safety Report 20761129 (Version 1)
Quarter: 2022Q2

REPORT INFORMATION
  Report Type: Spontaneous
  Country: PT (occurrence: PT)
  Receive Date: 20220428
  Receipt Date: 20220428
  Transmission Date: 20220721
  Serious: Yes (Other)
  Sender: FDA-Public Use
  Company Number: PT-INFARMED-B202203-744

PATIENT
  Age: 13 Year
  Sex: Male

DRUGS (1)
  1. AMOXICILLIN [Suspect]
     Active Substance: AMOXICILLIN
     Indication: Product used for unknown indication
     Dosage: UNK
     Route: 048
     Dates: start: 2017

REACTIONS (3)
  - Angioedema [Recovered/Resolved]
  - Oedema peripheral [Recovered/Resolved]
  - Rash maculo-papular [Recovered/Resolved]
